FAERS Safety Report 5695493-6 (Version None)
Quarter: 2008Q2

REPORT INFORMATION
  Report Type: 
  Country: None (occurrence: None)
  Receive Date: 20080407
  Receipt Date: 20080401
  Transmission Date: 20081010
  Serious: Yes (Hospitalization)
  Sender: FDA-Public Use
  Company Number: US-RB-007724-07

PATIENT
  Sex: Female
  Weight: 69.75 kg

DRUGS (8)
  1. SUBUTEX [Suspect]
     Route: 060
     Dates: start: 20070503, end: 20070808
  2. SUBUTEX [Suspect]
     Route: 060
     Dates: start: 20070809, end: 20080117
  3. SUBOXONE [Suspect]
     Route: 060
     Dates: start: 20070219, end: 20070430
  4. SUBOXONE [Suspect]
     Route: 060
     Dates: start: 20070501, end: 20070502
  5. SUBOXONE [Suspect]
     Route: 060
     Dates: start: 20080118, end: 20080313
  6. CYMBALTA [Concomitant]
     Indication: DEPRESSION
     Route: 048
     Dates: end: 20070614
  7. ZOLOFT [Concomitant]
     Indication: DEPRESSION
     Route: 048
  8. VITAMIN TAB [Concomitant]
     Indication: PREGNANCY
     Dosage: 1 TABLET A DAY
     Route: 048

REACTIONS (5)
  - ABDOMINAL PAIN [None]
  - DEPRESSION [None]
  - DRUG EXPOSURE DURING PREGNANCY [None]
  - HEADACHE [None]
  - SWELLING FACE [None]
